FAERS Safety Report 11744216 (Version 1)
Quarter: 2015Q4

REPORT INFORMATION
  Report Type: Other
  Country: US (occurrence: US)
  Receive Date: 20151116
  Receipt Date: 20151116
  Transmission Date: 20160304
  Serious: Yes (Other)
  Sender: FDA-Public Use
  Company Number: US-AAIPHARMA_SERVICES_CORP-USA-POI0581201500020

PATIENT
  Age: 63 Year
  Sex: Male

DRUGS (1)
  1. AZASAN [Suspect]
     Active Substance: AZATHIOPRINE
     Indication: IMMUNOSUPPRESSION

REACTIONS (1)
  - Epstein-Barr virus associated lymphoproliferative disorder [Recovering/Resolving]

NARRATIVE: CASE EVENT DATE: 201412
